FAERS Safety Report 19943096 (Version 1)
Quarter: 2021Q4

REPORT INFORMATION
  Report Type: Spontaneous
  Country: US (occurrence: US)
  Receive Date: 20211008
  Receipt Date: 20211008
  Transmission Date: 20220303
  Serious: Yes (Other)
  Sender: FDA-Public Use
  Company Number: None

PATIENT
  Age: 56 Year
  Sex: Female
  Weight: 81 kg

DRUGS (18)
  1. PRIVIGEN [Suspect]
     Active Substance: HUMAN IMMUNOGLOBULIN G
     Indication: Immunodeficiency common variable
     Dosage: OTHER FREQUENCY:EVERY 4 WEEKS;
     Route: 041
  2. Acetaminophen 500 mg po [Concomitant]
  3. Diphenhydramine 25 mg po [Concomitant]
  4. Actigall 300 mg po [Concomitant]
  5. Corgard 20 mg po [Concomitant]
  6. Vitamin D3 400 unit po [Concomitant]
  7. Vitamin B Complex po [Concomitant]
  8. Folic Acid 400 mcg po [Concomitant]
  9. Hydrochlorothiazide 25 mg po [Concomitant]
  10. Meclizine 25 mg po [Concomitant]
  11. Nadalol 20 mg po [Concomitant]
  12. Prednisone 20 mg po [Concomitant]
  13. Prilosec 10 mg po [Concomitant]
  14. Singular 10 mg po [Concomitant]
  15. Spiriva handihaler inhalation [Concomitant]
  16. Wellbutrin XL 300 mg po [Concomitant]
  17. Zoloft 100 mg po [Concomitant]
  18. Xalatan opthamolic [Concomitant]

REACTIONS (1)
  - Urticaria [None]

NARRATIVE: CASE EVENT DATE: 20211008
